FAERS Safety Report 8971633 (Version 1)
Quarter: 2012Q4

REPORT INFORMATION
  Report Type: 
  Country: BR (occurrence: BR)
  Receive Date: 20121217
  Receipt Date: 20121217
  Transmission Date: 20130627
  Serious: Yes (Other)
  Sender: FDA-Public Use
  Company Number: BR-SHIRE-ALL1-2012-06128

PATIENT

DRUGS (2)
  1. VENVANSE [Suspect]
     Indication: PRODUCT USED FOR UNKNOWN INDICATION
     Dosage: UNK, Unknown
     Route: 048
     Dates: start: 201208
  2. COLCHICIN [Concomitant]
     Indication: FAMILIAL MEDITERRANEAN FEVER
     Dosage: UNK, Unknown
     Route: 065

REACTIONS (3)
  - Familial mediterranean fever [Unknown]
  - Condition aggravated [Unknown]
  - Off label use [Unknown]
